FAERS Safety Report 13800916 (Version 1)
Quarter: 2017Q3

REPORT INFORMATION
  Report Type: Spontaneous
  Country: CA (occurrence: CA)
  Receive Date: 20170727
  Receipt Date: 20170727
  Transmission Date: 20171127
  Serious: Yes (Hospitalization, Disabling)
  Sender: FDA-Public Use
  Company Number: CA-PFIZER INC-1447304

PATIENT
  Age: 61 Year
  Sex: Male
  Weight: 104.6 kg

DRUGS (32)
  1. CLINDAMYCIN. [Concomitant]
     Active Substance: CLINDAMYCIN
     Indication: CELLULITIS
     Dosage: NOT REPORTED, NOT REPORTED
     Dates: start: 20120129
  2. ENOXAPARIN SODIUM. [Concomitant]
     Active Substance: ENOXAPARIN SODIUM
     Indication: ANTICOAGULANT THERAPY
     Dosage: NOT REPORTED, NOT REPORTED
     Dates: start: 20120326, end: 20120330
  3. FENOFIBRATE. [Concomitant]
     Active Substance: FENOFIBRATE
     Indication: HYPERCHOLESTEROLAEMIA
     Dosage: NOT REPORTED, NOT REPORTED
  4. HYDROCORTISONE SODIUM SUCCINATE [Concomitant]
     Active Substance: HYDROCORTISONE SODIUM SUCCINATE
     Indication: ADRENAL INSUFFICIENCY
     Dosage: NOT REPORTED, NOT REPORTED
     Dates: start: 20120326, end: 20120329
  5. PARACETAMOL [Concomitant]
     Active Substance: ACETAMINOPHEN
     Indication: PAIN
     Dosage: NOT REPORTED, NOT REPORTED
     Dates: start: 20111205, end: 20120515
  6. PREDNISONE. [Concomitant]
     Active Substance: PREDNISONE
     Indication: ADRENAL INSUFFICIENCY
     Dosage: NOT REPORTED, NOT REPORTED
     Dates: start: 20120328, end: 20120330
  7. METFORMIN HYDROCHLORIDE. [Concomitant]
     Active Substance: METFORMIN HYDROCHLORIDE
     Indication: DIABETES MELLITUS
     Dosage: NOT REPORTED, NOT REPORTED
  8. PREDNISONE. [Suspect]
     Active Substance: PREDNISONE
     Indication: DIFFUSE LARGE B-CELL LYMPHOMA
     Dosage: 100 MG, LAST DOSE TAKEN ON 02 APR 2012; FREQ: 1 WEEK INTERVAL: 3
     Route: 048
     Dates: start: 20111205
  9. CRESTOR [Concomitant]
     Active Substance: ROSUVASTATIN CALCIUM
     Indication: HYPERCHOLESTEROLAEMIA
     Dosage: NOT REPORTED, NOT REPORTED
  10. DIPHENHYDRAMINE. [Concomitant]
     Active Substance: DIPHENHYDRAMINE
     Dosage: NOT REPORTED, NOT REPORTED
     Dates: start: 20111205, end: 20120515
  11. MAGNESIUM SULFATE. [Concomitant]
     Active Substance: MAGNESIUM SULFATE
     Indication: BLOOD MAGNESIUM DECREASED
     Dosage: NOT REPORTED, NOT REPORTED
     Dates: start: 20120326, end: 20120327
  12. SILVER SULFADIAZINE. [Concomitant]
     Active Substance: SILVER SULFADIAZINE
     Indication: BLISTER
     Dosage: NOT REPORTED, NOT REPORTED
     Dates: start: 20120327
  13. INSULIN [Concomitant]
     Active Substance: INSULIN NOS
     Indication: DIABETES MELLITUS
     Dosage: NOT REPORTED, NOT REPORTED
  14. PIOGLITAZONE HYDROCHLORIDE. [Concomitant]
     Active Substance: PIOGLITAZONE HYDROCHLORIDE
     Indication: DIABETES MELLITUS
     Dosage: NOT REPORTED, NOT REPORTED
  15. VITAMIN D /00107901/ [Concomitant]
     Active Substance: ERGOCALCIFEROL
     Dosage: NOT REPORTED, NOT REPORTED
  16. DOXORUBICIN [Suspect]
     Active Substance: DOXORUBICIN
     Indication: DIFFUSE LARGE B-CELL LYMPHOMA
     Dosage: 111 MG, LAST DOSE TAKEN ON 02 APR 2012, FREQ: 1 WEEK: INTERVAL: 3
     Route: 042
     Dates: start: 20111205
  17. OXYCOCET [Concomitant]
     Active Substance: ACETAMINOPHEN\OXYCODONE HYDROCHLORIDE
     Indication: PAIN IN EXTREMITY
     Dosage: NOT REPORTED, NOT REPORTED
  18. AZITHROMYCIN ANHYDROUS. [Concomitant]
     Active Substance: AZITHROMYCIN ANHYDROUS
     Indication: SEPSIS
     Dosage: NOT REPORTED, NOT REPORTED
     Dates: start: 20120326, end: 20120327
  19. CYANOCOBALAMIN. [Concomitant]
     Active Substance: CYANOCOBALAMIN
     Indication: VITAMIN B12
     Dosage: NOT REPORTED, NOT REPORTED
     Dates: start: 20120326
  20. GENTAMYCIN SULFATE [Concomitant]
     Active Substance: GENTAMICIN SULFATE
     Indication: CELLULITIS
     Dosage: NOT REPORTED, NOT REPORTED
     Dates: start: 20120128
  21. GRANISETRON [Concomitant]
     Active Substance: GRANISETRON
     Dosage: NOT REPORTED, NOT REPORTED
     Dates: start: 20111205, end: 20120515
  22. ISOPHANE INSULIN [Concomitant]
     Active Substance: INSULIN NOS
     Indication: DIABETES MELLITUS
     Dosage: NOT REPORTED, NOT REPORTED
  23. VITAMIN B12 [Concomitant]
     Active Substance: CYANOCOBALAMIN
     Indication: VITAMIN B12
     Dosage: NOT REPORTED, NOT REPORTED
     Dates: start: 20120326
  24. VINCRISTINE SULFATE. [Suspect]
     Active Substance: VINCRISTINE SULFATE
     Indication: DIFFUSE LARGE B-CELL LYMPHOMA
     Dosage: 2 MG, LAST DOSE TAKEN ON 02 APR 2012, FREQ: 1 WEEK; INTERVAL: 3
     Route: 042
     Dates: start: 20111205
  25. CYCLOPHOSPHAMIDE. [Suspect]
     Active Substance: CYCLOPHOSPHAMIDE
     Indication: DIFFUSE LARGE B-CELL LYMPHOMA
     Dosage: 1670 MG, LAST DOSE TAKEN ON 02 APR 2012, FREQ: 1 WEEK: INTERVAL: 3
     Route: 042
     Dates: start: 20111205
  26. ALEVE [Concomitant]
     Active Substance: NAPROXEN SODIUM
     Indication: PAIN IN EXTREMITY
     Dosage: NOT REPORTED, NOT REPORTED
     Dates: start: 20111106
  27. PIPERACILLIN AND TAZOBACTAM [Concomitant]
     Active Substance: PIPERACILLIN SODIUM\TAZOBACTAM SODIUM
     Dosage: NOT REPORTED, NOT REPORTED
  28. RANITIDINE. [Concomitant]
     Active Substance: RANITIDINE
     Dosage: NOT REPORTED, NOT REPORTED
     Dates: start: 20111205, end: 20120515
  29. AVAPRO [Concomitant]
     Active Substance: IRBESARTAN
     Indication: HYPERTENSION
     Dosage: NOT REPORTED, NOT REPORTED
  30. FLUDROCORTISONE ACETATE. [Concomitant]
     Active Substance: FLUDROCORTISONE ACETATE
     Indication: ADRENAL INSUFFICIENCY
     Dosage: NOT REPORTED, NOT REPORTED
     Dates: start: 20120326
  31. GLUCOSAMINE SULFATE [Concomitant]
     Active Substance: GLUCOSAMINE SULFATE
     Dosage: NOT REPORTED, NOT REPORTED
  32. SAXAGLIPTIN HYDROCHLORIDE. [Concomitant]
     Active Substance: SAXAGLIPTIN HYDROCHLORIDE
     Indication: DIABETES MELLITUS
     Dosage: NOT REPORTED, NOT REPORTED

REACTIONS (5)
  - Herpes simplex [Recovering/Resolving]
  - Infection reactivation [Recovering/Resolving]
  - Tachycardia [Recovered/Resolved]
  - Pneumonia [Recovered/Resolved]
  - Pneumonia [Recovering/Resolving]

NARRATIVE: CASE EVENT DATE: 20120326
